FAERS Safety Report 10233469 (Version 2)
Quarter: 2014Q2

REPORT INFORMATION
  Report Type: Spontaneous
  Country: CH (occurrence: CH)
  Receive Date: 20140612
  Receipt Date: 20140626
  Transmission Date: 20141212
  Serious: Yes (Other)
  Sender: FDA-Public Use
  Company Number: CH-JNJFOC-20140604843

PATIENT
  Sex: Female

DRUGS (9)
  1. SIMPONI [Suspect]
     Indication: SPONDYLOARTHROPATHY
     Dosage: APPROXIMATE TOTAL NUMBERS OF INJECTIONS PATIENT RECEIVED 3
     Route: 058
     Dates: start: 20130325, end: 20130528
  2. SIMPONI [Suspect]
     Indication: ANKYLOSING SPONDYLITIS
     Dosage: APPROXIMATE TOTAL NUMBERS OF INJECTIONS PATIENT RECEIVED 3
     Route: 058
     Dates: start: 20130325, end: 20130528
  3. ENBREL [Suspect]
     Indication: PRODUCT USED FOR UNKNOWN INDICATION
     Dosage: 3??INJECTIONS
     Route: 058
     Dates: start: 20130902, end: 20131010
  4. SALOFALK [Suspect]
     Indication: PRODUCT USED FOR UNKNOWN INDICATION
     Route: 065
     Dates: start: 2013
  5. ARCOXIA [Concomitant]
     Indication: ARTHRALGIA
     Dosage: ONCE DAILY FOR A FEW DAYS
     Route: 065
     Dates: start: 2009
  6. PARACETAMOL [Concomitant]
     Dosage: SPORADICALLY
     Route: 065
  7. CALCIMAGON D3 [Concomitant]
     Indication: VITAMIN D DEFICIENCY
     Route: 048
     Dates: start: 2009
  8. CALCIMAGON D3 [Concomitant]
     Indication: OSTEOPOROSIS PROPHYLAXIS
     Route: 048
     Dates: start: 2009
  9. VITAMIN D [Concomitant]
     Route: 065
     Dates: start: 2009

REACTIONS (3)
  - Malignant genitourinary tract neoplasm [Unknown]
  - Colitis [Unknown]
  - Metastases to lymph nodes [Recovering/Resolving]
